FAERS Safety Report 4790341-0 (Version None)
Quarter: 2005Q4

REPORT INFORMATION
  Report Type: 
  Country: None (occurrence: None)
  Receive Date: 20051005
  Receipt Date: 20050920
  Transmission Date: 20060501
  Serious: Yes (Life-Threatening)
  Sender: FDA-Public Use
  Company Number: CIP05001787

PATIENT
  Age: 54 Year
  Sex: Female
  Weight: 65.3 kg

DRUGS (4)
  1. ACTONEL [Suspect]
     Indication: OSTEOPOROSIS
     Dosage: 35 MG ONCE WEEKLY, ORAL
     Route: 048
     Dates: start: 20050213, end: 20050227
  2. IBUPROFEN [Concomitant]
  3. MULTIVIT (VITAMINS NOS) [Concomitant]
  4. CALCIUM WITH VITAMIN D (ERGOCALCIFEROL, CALCIUM SODIUM LACTATE, CALCIU [Concomitant]

REACTIONS (15)
  - ARTHRALGIA [None]
  - BLOOD ALBUMIN DECREASED [None]
  - CHEST PAIN [None]
  - DECREASED APPETITE [None]
  - DIARRHOEA [None]
  - FAECES DISCOLOURED [None]
  - HEPATIC CYST [None]
  - HEPATITIS [None]
  - HEPATOMEGALY [None]
  - LYMPHADENOPATHY [None]
  - MUSCULOSKELETAL STIFFNESS [None]
  - RASH [None]
  - RED CELL DISTRIBUTION WIDTH INCREASED [None]
  - URINARY TRACT INFECTION [None]
  - WEIGHT DECREASED [None]
